FAERS Safety Report 7726671-X (Version None)
Quarter: 2011Q3

REPORT INFORMATION
  Report Type: 
  Country: None (occurrence: None)
  Receive Date: 20110902
  Receipt Date: 20110830
  Transmission Date: 20111222
  Serious: Yes (Death, Hospitalization)
  Sender: FDA-Public Use
  Company Number: MX-SANOFI-AVENTIS-2011SA055961

PATIENT
  Age: 94 Year
  Sex: Female

DRUGS (3)
  1. ANTIHYPERTENSIVES [Concomitant]
     Dates: end: 20110416
  2. PLAVIX [Suspect]
     Indication: THROMBOSIS PROPHYLAXIS
     Route: 048
     Dates: start: 20110101, end: 20110416
  3. PLAVIX [Suspect]
     Indication: ISCHAEMIC STROKE
     Route: 048
     Dates: start: 20110101, end: 20110416

REACTIONS (6)
  - CONFUSIONAL STATE [None]
  - BLOOD PRESSURE INADEQUATELY CONTROLLED [None]
  - EPISTAXIS [None]
  - ISCHAEMIC STROKE [None]
  - DISORIENTATION [None]
  - VASCULAR DEMENTIA [None]
